FAERS Safety Report 6829522-0 (Version None)
Quarter: 2010Q3

REPORT INFORMATION
  Report Type: 
  Country: None (occurrence: None)
  Receive Date: 20100709
  Receipt Date: 20070324
  Transmission Date: 20110219
  Serious: Yes (Other)
  Sender: FDA-Public Use
  Company Number: US-PFIZER INC-2007006393

PATIENT
  Sex: Male
  Weight: 83 kg

DRUGS (11)
  1. CHANTIX [Suspect]
     Indication: EX-TOBACCO USER
     Dates: start: 20070101
  2. CHANTIX [Suspect]
     Indication: NICOTINE DEPENDENCE
  3. LAMICTAL [Concomitant]
  4. LITHIUM CARBONATE [Concomitant]
  5. DOXEPIN HCL [Concomitant]
  6. KLONOPIN [Concomitant]
  7. SYNTHROID [Concomitant]
  8. NEURONTIN [Concomitant]
  9. LOXAPINE [Concomitant]
  10. TRICOR [Concomitant]
  11. DOXAZOSIN [Concomitant]

REACTIONS (4)
  - BLOOD PRESSURE INCREASED [None]
  - GENITAL BURNING SENSATION [None]
  - MYALGIA [None]
  - PRURITUS [None]
